FAERS Safety Report 24527819 (Version 1)
Quarter: 2024Q4

REPORT INFORMATION
  Report Type: Spontaneous
  Country: FR (occurrence: FR)
  Receive Date: 20241021
  Receipt Date: 20241021
  Transmission Date: 20250114
  Serious: Yes (Hospitalization)
  Sender: NOVARTIS
  Company Number: None

PATIENT
  Age: 58 Year
  Sex: Female
  Weight: 67.7 kg

DRUGS (2)
  1. TAFINLAR [Suspect]
     Active Substance: DABRAFENIB MESYLATE
     Indication: Malignant melanoma
     Dosage: UNK (300 PUIS 200 MG/J DEPUIS LE 18/09)
     Route: 048
     Dates: start: 20240607, end: 20241004
  2. MEKINIST [Suspect]
     Active Substance: TRAMETINIB DIMETHYL SULFOXIDE
     Indication: Malignant melanoma
     Dosage: UNK (2 PUIS 1,5 MG/J DEPUIS LE 18/09)
     Route: 048
     Dates: start: 20240607, end: 20241003

REACTIONS (10)
  - Rhabdomyolysis [Recovering/Resolving]
  - Asthenia [Recovering/Resolving]
  - Decreased appetite [Recovering/Resolving]
  - General physical health deterioration [Recovering/Resolving]
  - Pyrexia [Recovering/Resolving]
  - Hepatic cytolysis [Recovering/Resolving]
  - Nausea [Recovered/Resolved]
  - Vomiting [Recovered/Resolved]
  - Headache [Recovered/Resolved]
  - Migraine [Recovered/Resolved]

NARRATIVE: CASE EVENT DATE: 20240701
